FAERS Safety Report 5349013-6 (Version None)
Quarter: 2007Q2

REPORT INFORMATION
  Report Type: 
  Country: None (occurrence: None)
  Receive Date: 20070516
  Receipt Date: 20070403
  Transmission Date: 20071010
  Serious: Yes (Hospitalization)
  Sender: FDA-Public Use
  Company Number: 200712450US

PATIENT
  Age: 53 Year
  Sex: Female

DRUGS (1)
  1. APIDRA [Suspect]
     Indication: DIABETES MELLITUS NON-INSULIN-DEPENDENT
     Dosage: 3 U ONCE
     Dates: start: 20070327, end: 20070327

REACTIONS (4)
  - FLUSHING [None]
  - HYPERGLYCAEMIA [None]
  - HYPERSENSITIVITY [None]
  - MALAISE [None]
